FAERS Safety Report 21580770 (Version 2)
Quarter: 2022Q4

REPORT INFORMATION
  Report Type: Spontaneous
  Country: PL (occurrence: PL)
  Receive Date: 20221111
  Receipt Date: 20221129
  Transmission Date: 20230113
  Serious: Yes (Hospitalization, Other)
  Sender: FDA-Public Use
  Company Number: PL-MACLEODS PHARMA EU LTD-MAC2022038181

PATIENT

DRUGS (29)
  1. LEVOFLOXACIN [Suspect]
     Active Substance: LEVOFLOXACIN
     Indication: Tuberculosis
     Dosage: 500 MILLIGRAM, BID START DATE: 2011
     Route: 065
  2. PYRAZINAMIDE [Suspect]
     Active Substance: PYRAZINAMIDE
     Indication: Tuberculosis
     Dosage: UNK,START DATE:04/2011 STOP DATE:08/2011
     Route: 065
  3. LOPINAVIR\RITONAVIR [Suspect]
     Active Substance: LOPINAVIR\RITONAVIR
     Indication: Product used for unknown indication
     Dosage: UNK
     Route: 065
  4. ABACAVIR\LAMIVUDINE [Suspect]
     Active Substance: ABACAVIR\LAMIVUDINE
     Indication: Product used for unknown indication
     Dosage: UNK
     Route: 065
  5. ETHIONAMIDE [Suspect]
     Active Substance: ETHIONAMIDE
     Indication: Tuberculosis
     Dosage: 750 MILLIGRAM, BID (START DATE:2011), EVERY 12 HOUR
     Route: 048
  6. CLINDAMYCIN [Suspect]
     Active Substance: CLINDAMYCIN
     Indication: Evidence based treatment
     Dosage: 600 MILLIGRAM, TID (START DATE:2011), EVERY 8 HOUR
     Route: 065
  7. CLINDAMYCIN [Suspect]
     Active Substance: CLINDAMYCIN
     Indication: Cerebral toxoplasmosis
  8. COTRIMOXAZOLE [Suspect]
     Active Substance: SULFAMETHOXAZOLE\TRIMETHOPRIM
     Indication: Antifungal prophylaxis
     Dosage: UNK
     Route: 048
  9. ISONIAZID [Suspect]
     Active Substance: ISONIAZID
     Indication: Tuberculosis
     Dosage: UNK,START DATE:04/2011 STOP DATE:08/2011
     Route: 065
  10. RIFAMPIN [Suspect]
     Active Substance: RIFAMPIN
     Indication: Tuberculosis
     Dosage: UNK,START DATE:04/2011 STOP DATE:08/2011
     Route: 065
  11. STREPTOMYCIN [Suspect]
     Active Substance: STREPTOMYCIN SULFATE
     Indication: Tuberculosis
     Dosage: UNK,(START DATE:2011 AND STOP DATE:2011)
     Route: 065
  12. MEROPENEM [Suspect]
     Active Substance: MEROPENEM
     Indication: Product used for unknown indication
     Dosage: UNK, MEROPENEM POWDER FOR SOLUTION FOR INJECTION OR INFUSION
     Route: 065
  13. ERTAPENEM [Suspect]
     Active Substance: ERTAPENEM
     Indication: Product used for unknown indication
     Dosage: UNK
     Route: 065
  14. FOSFOMYCIN [Suspect]
     Active Substance: FOSFOMYCIN
     Indication: Product used for unknown indication
     Dosage: UNK
     Route: 065
  15. CLOFAZIMINE [Suspect]
     Active Substance: CLOFAZIMINE
     Indication: Tuberculosis
     Dosage: 100 MILLIGRAM, BID (START DATE:2011)
     Route: 048
  16. CLARITHROMYCIN [Suspect]
     Active Substance: CLARITHROMYCIN
     Indication: Tuberculosis
     Dosage: 500 MILLIGRAM, BID (START DATE: 2011),EVERY 12 HOUR
     Route: 048
  17. RALTEGRAVIR [Suspect]
     Active Substance: RALTEGRAVIR
     Indication: Product used for unknown indication
     Dosage: UNK
     Route: 065
  18. DARUNAVIR [Suspect]
     Active Substance: DARUNAVIR
     Indication: Product used for unknown indication
     Dosage: UNK
     Route: 065
  19. RITONAVIR [Suspect]
     Active Substance: RITONAVIR
     Indication: Product used for unknown indication
     Dosage: UNK
     Route: 065
  20. FLUCONAZOLE [Suspect]
     Active Substance: FLUCONAZOLE
     Indication: Candida infection
     Dosage: UNK, START DATE:2011 STOP DATE:2011
     Route: 065
  21. TRUVADA [Suspect]
     Active Substance: EMTRICITABINE\TENOFOVIR DISOPROXIL FUMARATE
     Indication: HIV infection
     Dosage: 1 DOSAGE FORM, QD ((START DATE:2011), TRUVADA
     Route: 065
  22. EFAVIRENZ [Suspect]
     Active Substance: EFAVIRENZ
     Indication: HIV infection
     Dosage: 800 MILLIGRAM, QD (START DATE:2011)
     Route: 065
  23. GANCICLOVIR [Concomitant]
     Active Substance: GANCICLOVIR
     Indication: Cytomegalovirus chorioretinitis
     Dosage: 250 MILLIGRAM, BID (START DATE:2011), EVERY 12 HOUR
     Route: 042
  24. PYRIMETHAMINE [Concomitant]
     Active Substance: PYRIMETHAMINE
     Indication: Evidence based treatment
     Dosage: 50 MILLIGRAM, QD (START DATE:2011)
     Route: 065
  25. PYRIMETHAMINE [Concomitant]
     Active Substance: PYRIMETHAMINE
     Indication: Cerebral toxoplasmosis
  26. SULFAMETHOXAZOLE\TRIMETHOPRIM [Concomitant]
     Active Substance: SULFAMETHOXAZOLE\TRIMETHOPRIM
     Indication: Antifungal prophylaxis
     Dosage: 960 MILLIGRAM, EVERY 2 DAY (START DATE: 2011)
     Route: 048
  27. VORICONAZOLE [Concomitant]
     Active Substance: VORICONAZOLE
     Indication: Candida infection
     Dosage: 0.2 GRAM, BID (START DATE:2011)
     Route: 065
  28. VORICONAZOLE [Concomitant]
     Active Substance: VORICONAZOLE
     Indication: Candida infection
     Dosage: 0.4 GRAM, BID (START DATE:2011)
     Route: 065
  29. ETHAMBUTOL [Concomitant]
     Active Substance: ETHAMBUTOL HYDROCHLORIDE
     Indication: Tuberculosis
     Dosage: UNK,START DATE:04/2011 STOP DATE:08/2011
     Route: 065

REACTIONS (16)
  - Urinary tract infection [Unknown]
  - Hepatitis cholestatic [Unknown]
  - Pancreatitis [Unknown]
  - Clostridium difficile colitis [Unknown]
  - Conductive deafness [Unknown]
  - Lymphopenia [Unknown]
  - Drug resistance [Unknown]
  - Mental disorder [Unknown]
  - Neutropenia [Unknown]
  - Diarrhoea [Unknown]
  - Nausea [Unknown]
  - Myalgia [Unknown]
  - Blood bilirubin increased [Unknown]
  - Drug ineffective [Unknown]
  - Urinary tract inflammation [Unknown]
  - Phimosis [Unknown]
